FAERS Safety Report 8318733-3 (Version None)
Quarter: 2012Q2

REPORT INFORMATION
  Report Type: 
  Country: None (occurrence: None)
  Receive Date: 20120427
  Receipt Date: 20120426
  Transmission Date: 20120825
  Serious: Yes (Other)
  Sender: FDA-Public Use
  Company Number: JP-PFIZER INC-2012095693

PATIENT
  Age: 67 Year
  Sex: Female

DRUGS (3)
  1. CABERGOLINE [Suspect]
     Indication: CUSHING'S SYNDROME
     Dosage: 0.25 MG/DAY
  2. BROMOCRIPTINE [Concomitant]
     Indication: CUSHING'S SYNDROME
     Dosage: 2.5 MG, SINGLE
  3. BROMOCRIPTINE [Concomitant]
     Dosage: 2.5 MG, 3X/WEEK

REACTIONS (1)
  - ADRENAL INSUFFICIENCY [None]
